FAERS Safety Report 4856471-X (Version None)
Quarter: 2005Q4

REPORT INFORMATION
  Report Type: 
  Country: None (occurrence: None)
  Receive Date: 20051219
  Receipt Date: 20050221
  Transmission Date: 20060501
  Serious: No
  Sender: FDA-Public Use
  Company Number: US-GLAXOSMITHKLINE-A0546470A

PATIENT
  Age: 58 Year
  Sex: Male

DRUGS (2)
  1. NICODERM CQ [Suspect]
     Dates: end: 20050220
  2. DIABETES MEDICATION [Concomitant]

REACTIONS (3)
  - APPLICATION SITE DERMATITIS [None]
  - APPLICATION SITE ERYTHEMA [None]
  - APPLICATION SITE SWELLING [None]
